FAERS Safety Report 23847137 (Version 5)
Quarter: 2024Q3

REPORT INFORMATION
  Report Type: Report from Study
  Country: US (occurrence: US)
  Receive Date: 20240513
  Receipt Date: 20240729
  Transmission Date: 20241017
  Serious: Yes (Hospitalization)
  Sender: ROCHE
  Company Number: US-ROCHE-3551362

PATIENT
  Age: 39 Year
  Sex: Female
  Weight: 74.84 kg

DRUGS (5)
  1. OCREVUS [Suspect]
     Active Substance: OCRELIZUMAB
     Indication: Multiple sclerosis
     Dosage: DATE OF TREATMENT: 20/JUL/2023, 15/AUG/2023.
     Route: 042
     Dates: start: 20230720, end: 20230815
  2. TIZANIDINE [Concomitant]
     Active Substance: TIZANIDINE
  3. FAMOTIDINE [Concomitant]
     Active Substance: FAMOTIDINE
  4. ALPRAZOLAM [Concomitant]
     Active Substance: ALPRAZOLAM
  5. PREGABALIN [Concomitant]
     Active Substance: PREGABALIN

REACTIONS (4)
  - Arthralgia [Recovered/Resolved]
  - Dizziness [Recovered/Resolved]
  - Brain fog [Recovered/Resolved]
  - Peripheral swelling [Unknown]

NARRATIVE: CASE EVENT DATE: 20240201
